FAERS Safety Report 5276653-5 (Version None)
Quarter: 2007Q1

REPORT INFORMATION
  Report Type: 
  Country: None (occurrence: None)
  Receive Date: 20070321
  Receipt Date: 20070129
  Transmission Date: 20070707
  Serious: Yes (Hospitalization)
  Sender: FDA-Public Use
  Company Number: 237057K06USA

PATIENT
  Age: 53 Year
  Sex: Male

DRUGS (3)
  1. REBIF [Suspect]
     Indication: MULTIPLE SCLEROSIS
     Dosage: 44  MCG, 3 IN 1 WEEKS, SUBCUTANEOUS
     Route: 058
     Dates: start: 20060525
  2. ANTIHYPERTENSIVE MDEICATION (ANTIHYPERTENSIVES) [Concomitant]
  3. RYTHMOL [Concomitant]

REACTIONS (3)
  - CHEST PAIN [None]
  - STRESS [None]
  - TENSION [None]
